FAERS Safety Report 5748141-0 (Version None)
Quarter: 2008Q2

REPORT INFORMATION
  Report Type: 
  Country: None (occurrence: None)
  Receive Date: 20080523
  Receipt Date: 20080522
  Transmission Date: 20081010
  Serious: Yes (Life-Threatening, Hospitalization)
  Sender: FDA-Public Use
  Company Number: JP-BOEHRINGER INGELHEIM GMBH, GERMANY-2007-BP-25091NB

PATIENT
  Sex: Female
  Weight: 31 kg

DRUGS (5)
  1. BI-SIFROL TABLETS [Suspect]
     Indication: PARKINSON'S DISEASE
     Dates: start: 20070509
  2. SELEGILINE HCL [Suspect]
     Indication: PARKINSON'S DISEASE
     Dates: start: 20070523
  3. FAMOTIDINE [Suspect]
     Indication: GASTROSTOMY
     Route: 042
     Dates: start: 20071106, end: 20071108
  4. RASENAZOLIN [Suspect]
     Indication: GASTROSTOMY
     Route: 042
     Dates: start: 20071106, end: 20071108
  5. MADOPAR [Suspect]
     Indication: PARKINSON'S DISEASE
     Route: 048

REACTIONS (7)
  - BLEPHAROSPASM [None]
  - BLOOD PRESSURE FLUCTUATION [None]
  - DRUG INTERACTION [None]
  - FALL [None]
  - FEMUR FRACTURE [None]
  - ORAL INTAKE REDUCED [None]
  - VISUAL FIELD DEFECT [None]
